FAERS Safety Report 9857004 (Version 4)
Quarter: 2014Q4

REPORT INFORMATION
  Report Type: Spontaneous
  Country: US (occurrence: US)
  Receive Date: 20140130
  Receipt Date: 20141121
  Transmission Date: 20150529
  Serious: Yes (Hospitalization, Other)
  Sender: FDA-Public Use
  Company Number: US-009507513-1401USA013646

PATIENT
  Sex: Female
  Weight: 73.92 kg

DRUGS (2)
  1. JANUVIA [Suspect]
     Active Substance: SITAGLIPTIN PHOSPHATE
     Dosage: 100 MG, QD
     Route: 048
     Dates: start: 20100323
  2. JANUVIA [Suspect]
     Active Substance: SITAGLIPTIN PHOSPHATE
     Indication: TYPE 2 DIABETES MELLITUS
     Dosage: 1000 MG, BID
     Route: 048
     Dates: start: 2009, end: 2011

REACTIONS (33)
  - Cholecystectomy [Unknown]
  - Thyroidectomy [Unknown]
  - Type 1 diabetes mellitus [Unknown]
  - Pruritus [Unknown]
  - Hysterectomy [Unknown]
  - Radiotherapy [Unknown]
  - Wound infection [Recovered/Resolved]
  - Ductal adenocarcinoma of pancreas [Unknown]
  - Mucocutaneous flap operation [Unknown]
  - Enterobacter test positive [Unknown]
  - Biliary tract infection bacterial [Unknown]
  - Diabetes mellitus inadequate control [Unknown]
  - Hypertension [Unknown]
  - Medical device change [Unknown]
  - Pulmonary hilum mass [Unknown]
  - Cholelithiasis [Unknown]
  - Hepatitis [Unknown]
  - Hepaticojejunostomy [Unknown]
  - Stent placement [Unknown]
  - Hyperlipidaemia [Unknown]
  - Pancreaticoduodenectomy [Unknown]
  - Lymphadenectomy [Unknown]
  - Seizure [Unknown]
  - Inappropriate schedule of drug administration [Unknown]
  - Pulmonary mass [Unknown]
  - Gastroenterostomy [Unknown]
  - Hypoglycaemia [Unknown]
  - Inner ear operation [Unknown]
  - Umbilical hernia [Unknown]
  - Diaphragmatic disorder [Unknown]
  - Therapeutic procedure [Unknown]
  - Bile duct stenosis [Unknown]
  - Renal atrophy [Unknown]

NARRATIVE: CASE EVENT DATE: 2009
